FAERS Safety Report 15836412 (Version 1)
Quarter: 2019Q1

REPORT INFORMATION
  Report Type: Spontaneous
  Country: DE (occurrence: DE)
  Receive Date: 20190117
  Receipt Date: 20190117
  Transmission Date: 20190417
  Serious: Yes (Hospitalization)
  Sender: FDA-Public Use
  Company Number: DE-HIKMA PHARMACEUTICALS USA INC.-DE-H14001-19-00186

PATIENT
  Age: 13 Year
  Sex: Female
  Weight: 32 kg

DRUGS (5)
  1. METHYLPREDNISOLON [Suspect]
     Active Substance: METHYLPREDNISOLONE
     Indication: PRODUCT USED FOR UNKNOWN INDICATION
     Dosage: ()
     Route: 042
  2. RITUXIMAB. [Suspect]
     Active Substance: RITUXIMAB
     Indication: PRODUCT USED FOR UNKNOWN INDICATION
     Route: 042
  3. COLCHICINUM DISPERT [Concomitant]
     Indication: FAMILIAL MEDITERRANEAN FEVER
     Dosage: DAILY DOSE: 1.5 MG MILLGRAM(S) EVERY DAYS
     Route: 048
  4. ANTITHYMOCYTE IMMUNOGLOBULIN [Suspect]
     Active Substance: THYMOCYTE IMMUNE GLOBULIN NOS
     Indication: PRODUCT USED FOR UNKNOWN INDICATION
     Route: 042
  5. L-THYROXIN [Concomitant]
     Active Substance: LEVOTHYROXINE SODIUM
     Indication: HYPOTHYROIDISM
     Dosage: DAILY DOSE: 25 ?G MICROGRAM(S) EVERY DAYS
     Route: 048

REACTIONS (4)
  - Aspergilloma [Not Recovered/Not Resolved]
  - Pulmonary cavitation [Not Recovered/Not Resolved]
  - Haemoptysis [Not Recovered/Not Resolved]
  - Chest pain [Not Recovered/Not Resolved]

NARRATIVE: CASE EVENT DATE: 20181025
